FAERS Safety Report 20683373 (Version 1)
Quarter: 2022Q2

REPORT INFORMATION
  Report Type: Spontaneous
  Country: US (occurrence: US)
  Receive Date: 20220407
  Receipt Date: 20220407
  Transmission Date: 20220721
  Serious: No
  Sender: FDA-Public Use
  Company Number: US-BRISTOL-MYERS SQUIBB COMPANY-2022-014163

PATIENT
  Age: 66 Year
  Sex: Male
  Weight: 67.13 kg

DRUGS (1)
  1. REVLIMID [Suspect]
     Active Substance: LENALIDOMIDE
     Indication: Lymphoma
     Dosage: 25 MILLIGRAM
     Route: 048
     Dates: start: 20210601

REACTIONS (3)
  - Constipation [Unknown]
  - Rhinorrhoea [Unknown]
  - Taste disorder [Unknown]
